FAERS Safety Report 4322629-1 (Version None)
Quarter: 2004Q1

REPORT INFORMATION
  Report Type: 
  Country: None (occurrence: None)
  Receive Date: 20040319
  Receipt Date: 20040310
  Transmission Date: 20041129
  Serious: Yes (Hospitalization, Other)
  Sender: FDA-Public Use
  Company Number: 2004-03-0676

PATIENT
  Age: 7 Year
  Sex: Male

DRUGS (2)
  1. GENTAMICIN [Suspect]
     Indication: THROMBOPHLEBITIS SEPTIC
     Dosage: 15 MG/KG QD
  2. AMPICILLIN [Concomitant]

REACTIONS (8)
  - HYPOCALCAEMIA [None]
  - HYPOCHLORAEMIA [None]
  - HYPOKALAEMIA [None]
  - HYPOMAGNESAEMIA [None]
  - HYPONATRAEMIA [None]
  - HYPOPHOSPHATAEMIA [None]
  - METABOLIC ALKALOSIS [None]
  - PSEUDO-BARTTER SYNDROME [None]
